FAERS Safety Report 14412576 (Version 1)
Quarter: 2018Q1

REPORT INFORMATION
  Report Type: Spontaneous
  Country: US (occurrence: US)
  Receive Date: 20180118
  Receipt Date: 20180118
  Transmission Date: 20180509
  Serious: Yes (Other)
  Sender: FDA-Public Use
  Company Number: None

PATIENT
  Age: 44 Year
  Sex: Female
  Weight: 163.35 kg

DRUGS (18)
  1. VITAMIN D3 [Concomitant]
     Active Substance: CHOLECALCIFEROL
  2. ATROVENT [Concomitant]
     Active Substance: IPRATROPIUM BROMIDE
  3. SEROQUEL [Concomitant]
     Active Substance: QUETIAPINE FUMARATE
  4. SA VELLA [Concomitant]
  5. DEXAMETHASONE. [Concomitant]
     Active Substance: DEXAMETHASONE
  6. PREDNISONE. [Concomitant]
     Active Substance: PREDNISONE
  7. ALBU TEROL SULFATE [Concomitant]
  8. CAPECITABINE. [Suspect]
     Active Substance: CAPECITABINE
     Indication: BREAST CANCER
     Route: 048
     Dates: start: 20170209, end: 20180118
  9. TRILIPIX [Concomitant]
     Active Substance: FENOFIBRIC ACID
  10. GABAPENTIN. [Concomitant]
     Active Substance: GABAPENTIN
  11. VALSARTAN. [Concomitant]
     Active Substance: VALSARTAN
  12. FUROSEMIDE. [Concomitant]
     Active Substance: FUROSEMIDE
  13. VICTOZA [Concomitant]
     Active Substance: LIRAGLUTIDE
  14. GLIPIZIDE. [Concomitant]
     Active Substance: GLIPIZIDE
  15. METOPROLOL SUCCINATE ER [Concomitant]
     Active Substance: METOPROLOL SUCCINATE
  16. LORAZEPAM. [Concomitant]
     Active Substance: LORAZEPAM
  17. POTASSIUM CHLORIDE. [Concomitant]
     Active Substance: POTASSIUM CHLORIDE
  18. VENTOLIN HFA [Concomitant]
     Active Substance: ALBUTEROL SULFATE

REACTIONS (1)
  - Disease progression [None]
